FAERS Safety Report 4299964-9 (Version None)
Quarter: 2004Q1

REPORT INFORMATION
  Report Type: 
  Country: None (occurrence: None)
  Receive Date: 20040206
  Receipt Date: 20040206
  Transmission Date: 20041129
  Serious: Yes (Life-Threatening, Hospitalization)
  Sender: FDA-Public Use
  Company Number: None

PATIENT
  Age: 45 Year
  Sex: Male
  Weight: 74 kg

DRUGS (1)
  1. TPA [Suspect]
     Indication: CEREBROVASCULAR ACCIDENT
     Dosage: 54 MG ONCE INTRA-ARTERIAL
     Route: 013
     Dates: start: 20040201, end: 20040201

REACTIONS (1)
  - SUBARACHNOID HAEMORRHAGE [None]
